FAERS Safety Report 7250237-1 (Version None)
Quarter: 2011Q1

REPORT INFORMATION
  Report Type: 
  Country: None (occurrence: None)
  Receive Date: 20110128
  Receipt Date: 20110117
  Transmission Date: 20110831
  Serious: Yes (Hospitalization, Disabling, Other)
  Sender: FDA-Public Use
  Company Number: BR-BAYER-200822486LA

PATIENT
  Sex: Female

DRUGS (10)
  1. SERTRALINE HYDROCHLORIDE [Concomitant]
     Indication: DEPRESSION
     Dosage: 50 MG, QD
     Route: 048
     Dates: start: 20030101
  2. MANTIDAN [Concomitant]
     Indication: MUSCLE SPASTICITY
  3. ANTIHISTAMINES [Concomitant]
     Indication: PREMEDICATION
     Route: 048
  4. ACETAMINOPHEN [Concomitant]
     Indication: HYPERTENSION
     Route: 048
  5. LOSARTAN POTASSIUM [Concomitant]
     Indication: HYPERSENSITIVITY
     Route: 048
     Dates: start: 20020101
  6. ARADOIS [Concomitant]
     Indication: HYPERTENSION
     Route: 048
  7. BETAFERON [Suspect]
     Indication: SECONDARY PROGRESSIVE MULTIPLE SCLEROSIS
     Dosage: BETAJECT
     Route: 058
     Dates: start: 19990101, end: 20100901
  8. BETAFERON [Suspect]
     Indication: MULTIPLE SCLEROSIS
  9. MANTIDAN [Concomitant]
     Indication: MUSCLE TWITCHING
     Dosage: 100 MG, QD
     Route: 048
     Dates: start: 20030101
  10. ALLEGRA [Concomitant]
     Indication: HYPERSENSITIVITY
     Route: 048

REACTIONS (18)
  - SEPSIS [None]
  - MALAISE [None]
  - PAIN [None]
  - HEAD INJURY [None]
  - MULTIPLE SCLEROSIS [None]
  - FATIGUE [None]
  - MOVEMENT DISORDER [None]
  - COORDINATION ABNORMAL [None]
  - URINARY TRACT INFECTION [None]
  - PYREXIA [None]
  - CHOKING [None]
  - CONSTIPATION [None]
  - MOTOR DYSFUNCTION [None]
  - FALL [None]
  - ABASIA [None]
  - ANAL SPHINCTER ATONY [None]
  - HYPERTENSION [None]
  - DIARRHOEA [None]
